FAERS Safety Report 4417754-0 (Version None)
Quarter: 2004Q2

REPORT INFORMATION
  Report Type: 
  Country: None (occurrence: None)
  Receive Date: 20040621
  Receipt Date: 20040329
  Transmission Date: 20050107
  Serious: Yes (Other)
  Sender: FDA-Public Use
  Company Number: PHEH2004US03637

PATIENT
  Age: 59 Year
  Sex: Female
  Weight: 87.1 kg

DRUGS (4)
  1. ZOMETA [Suspect]
     Indication: MULTIPLE MYELOMA
     Dosage: 4 MG, INTRAVENOUS
     Route: 042
     Dates: start: 20020423, end: 20030725
  2. THALIDOMIDE (THALIDOMIDE) [Concomitant]
  3. LASIX [Concomitant]
  4. LISINOPRIL [Concomitant]

REACTIONS (5)
  - ASEPTIC NECROSIS BONE [None]
  - DENTAL TREATMENT [None]
  - INFECTION [None]
  - PAIN [None]
  - TOOTHACHE [None]
